FAERS Safety Report 16071824 (Version 1)
Quarter: 2019Q1

REPORT INFORMATION
  Report Type: Report from Study
  Country: ES (occurrence: ES)
  Receive Date: 20190314
  Receipt Date: 20190314
  Transmission Date: 20190418
  Serious: Yes (Life-Threatening, Hospitalization)
  Sender: FDA-Public Use
  Company Number: ES-TEVA-2019-ES-1021685

PATIENT
  Age: 69 Year
  Sex: Male

DRUGS (6)
  1. OMEPRAZOL (2141A) [Interacting]
     Active Substance: OMEPRAZOLE
     Indication: PROPHYLAXIS
     Dosage: 20 MILLIGRAM DAILY;
     Route: 048
     Dates: start: 20150327
  2. WARFARINA SODICA (3221SO) [Interacting]
     Active Substance: WARFARIN SODIUM
     Indication: DEEP VEIN THROMBOSIS
     Route: 048
     Dates: start: 20150505, end: 20181106
  3. METFORMINA (1359A) [Concomitant]
     Active Substance: METFORMIN HYDROCHLORIDE
     Indication: DIABETES MELLITUS
     Dosage: 1700 MILLIGRAM DAILY;
     Route: 048
     Dates: start: 20100816, end: 20181106
  4. SIMVASTATINA (1023A) [Suspect]
     Active Substance: SIMVASTATIN
     Indication: DYSLIPIDAEMIA
     Dosage: 20 MILLIGRAM DAILY;
     Route: 048
     Dates: start: 20100816, end: 20181106
  5. TORASEMIDA (2351A) [Concomitant]
     Active Substance: TORSEMIDE
     Dosage: 10 MILLIGRAM DAILY;
     Route: 048
     Dates: start: 20150327, end: 20181106
  6. IMUREL 50 MG COMPRIMIDOS RECUBIERTOS CON PELICULA , 50 COMPRIMIDOS [Concomitant]
     Indication: BEHCET^S SYNDROME
     Dosage: 100 MILLIGRAM DAILY;
     Route: 048
     Dates: start: 20150430, end: 20181106

REACTIONS (2)
  - Drug interaction [Unknown]
  - Haemorrhage intracranial [Recovered/Resolved]

NARRATIVE: CASE EVENT DATE: 20181030
